FAERS Safety Report 4985598-7 (Version None)
Quarter: 2006Q2

REPORT INFORMATION
  Report Type: 
  Country: None (occurrence: None)
  Receive Date: 20060426
  Receipt Date: 20060426
  Transmission Date: 20061013
  Serious: Yes (Hospitalization, Other)
  Sender: FDA-Public Use
  Company Number: None

PATIENT
  Sex: Female
  Weight: 71 kg

DRUGS (3)
  1. CYCLOPHOSPHAMIDE [Suspect]
     Indication: BREAST CANCER
     Dosage: 870 MG
     Dates: start: 20060417, end: 20060417
  2. TAXOTERE [Suspect]
     Dosage: 131 MG
     Dates: start: 20060417, end: 20060417
  3. DOXORUBICIN HCL [Suspect]
     Dosage: 87  MG
     Dates: start: 20060417, end: 20060417

REACTIONS (7)
  - CHEST DISCOMFORT [None]
  - DRUG INEFFECTIVE [None]
  - DYSPNOEA [None]
  - HEART RATE INCREASED [None]
  - OXYGEN SATURATION DECREASED [None]
  - RESPIRATORY RATE INCREASED [None]
  - WHEEZING [None]
